FAERS Safety Report 7472281-1 (Version None)
Quarter: 2011Q2

REPORT INFORMATION
  Report Type: 
  Country: None (occurrence: None)
  Receive Date: 20110502
  Receipt Date: 20110418
  Transmission Date: 20111010
  Serious: Yes (Death, Hospitalization)
  Sender: FDA-Public Use
  Company Number: 2011001620

PATIENT
  Age: 47 Year
  Sex: Female
  Weight: 50.5 kg

DRUGS (22)
  1. SPRYCEL [Suspect]
     Indication: NON-SMALL CELL LUNG CANCER STAGE IV
     Dosage: (20 MG,QD),ORAL, (50 MG,QD),ORAL
     Route: 048
     Dates: start: 20110211, end: 20110304
  2. SPRYCEL [Suspect]
     Indication: NON-SMALL CELL LUNG CANCER STAGE IV
     Dosage: (20 MG,QD),ORAL, (50 MG,QD),ORAL
     Route: 048
     Dates: start: 20110211, end: 20110304
  3. PEMETREXED [Concomitant]
  4. CARBOPLATIN [Concomitant]
  5. DEXAMETHASONE [Concomitant]
  6. OXYCONTIN [Concomitant]
  7. ALIMTA [Concomitant]
  8. ERLOTINIB HYDROCHLORIDE [Suspect]
     Indication: NON-SMALL CELL LUNG CANCER STAGE IV
     Dosage: (150 MG,PO),ORAL
     Route: 048
     Dates: start: 20110211, end: 20110304
  9. NEURONTIN [Concomitant]
  10. SPRYCEL [Suspect]
  11. HYCODAN [Concomitant]
  12. MEDROL DOSEPAK (METHYLPREINISOLONE) [Concomitant]
  13. XOPENEX [Concomitant]
  14. WELLBUTRIN [Concomitant]
  15. OXYCODONE HCL [Concomitant]
  16. SENOKOT-S (SENOKOT-S) [Concomitant]
  17. ZOFRAN ODT (ONDANSETRON HYDROCHLORIDE) [Concomitant]
  18. SPRYCEL [Suspect]
  19. AVASTIN [Concomitant]
  20. ATROVENT [Concomitant]
  21. IBUPROFEN [Concomitant]
  22. VENTOLIN [Concomitant]

REACTIONS (14)
  - BONE PAIN [None]
  - ARTHRALGIA [None]
  - ODYNOPHAGIA [None]
  - FUNGAL INFECTION [None]
  - INFECTION [None]
  - PNEUMONIA ASPIRATION [None]
  - ORAL PAIN [None]
  - NON-SMALL CELL LUNG CANCER METASTATIC [None]
  - NEOPLASM PROGRESSION [None]
  - OESOPHAGEAL FISTULA [None]
  - DYSPHAGIA [None]
  - OROPHARYNGEAL CANDIDIASIS [None]
  - BLOOD IRON DECREASED [None]
  - ANTIBIOTIC RESISTANT STAPHYLOCOCCUS TEST POSITIVE [None]
